FAERS Safety Report 5448585-0 (Version None)
Quarter: 2007Q3

REPORT INFORMATION
  Report Type: 
  Country: None (occurrence: None)
  Receive Date: 20070911
  Receipt Date: 20070905
  Transmission Date: 20080115
  Serious: Yes (Other)
  Sender: FDA-Public Use
  Company Number: PHMT2007CA01106

PATIENT
  Age: 50 Year

DRUGS (1)
  1. ZELNORM [Suspect]

REACTIONS (1)
  - MYOCARDIAL INFARCTION [None]
